FAERS Safety Report 7150691-X (Version None)
Quarter: 2010Q4

REPORT INFORMATION
  Report Type: 
  Country: None (occurrence: None)
  Receive Date: 20101207
  Receipt Date: 20101207
  Transmission Date: 20110411
  Serious: Yes (Life-Threatening)
  Sender: FDA-Public Use
  Company Number: None

PATIENT
  Age: 62 Year
  Sex: Female
  Weight: 101.4 kg

DRUGS (4)
  1. ACTEMRA [Suspect]
     Indication: RHEUMATOID ARTHRITIS
     Dosage: 421 MG Q4 WEEKS IV
     Route: 042
     Dates: start: 20101115
  2. ACTEMRA [Suspect]
     Indication: RHEUMATOID ARTHRITIS
     Dates: start: 20101115
  3. ACTEMRA [Suspect]
     Indication: RHEUMATOID ARTHRITIS
  4. ACTEMRA [Suspect]

REACTIONS (1)
  - CEREBROVASCULAR ACCIDENT [None]
